FAERS Safety Report 6469482-8 (Version None)
Quarter: 2009Q4

REPORT INFORMATION
  Report Type: 
  Country: None (occurrence: None)
  Receive Date: 20091202
  Receipt Date: 20091202
  Transmission Date: 20100525
  Serious: Yes (Hospitalization)
  Sender: FDA-Public Use
  Company Number: None

PATIENT
  Sex: Male
  Weight: 63.4 kg

DRUGS (2)
  1. BICALUTAMIDE (CASODEX) [Suspect]
     Dosage: 50 MG
  2. LEUPROLIDE ACETATE 22.5 MG [Suspect]
     Dosage: 22.5 MG

REACTIONS (3)
  - CULTURE URINE POSITIVE [None]
  - STREPTOCOCCAL INFECTION [None]
  - URINARY TRACT INFECTION [None]
